FAERS Safety Report 7483037-8 (Version None)
Quarter: 2011Q2

REPORT INFORMATION
  Report Type: 
  Country: None (occurrence: None)
  Receive Date: 20110516
  Receipt Date: 20090316
  Transmission Date: 20111010
  Serious: Yes (Other)
  Sender: FDA-Public Use
  Company Number: US-BAYER-200915599NA

PATIENT
  Age: 62 Year
  Sex: Female
  Weight: 61 kg

DRUGS (6)
  1. COZAAR [Concomitant]
     Dosage: 50 MG, UNK
     Dates: start: 20011116
  2. CARDIZEM CD [Concomitant]
     Dosage: 240 MG, UNK
     Dates: start: 20021101
  3. ACETYLSALICYLIC ACID SRT [Concomitant]
     Dosage: 325 MG, UNK
     Dates: start: 20021101
  4. MANNITOL [Concomitant]
     Dosage: 50 G, UNK
     Dates: start: 20030122
  5. TRASYLOL [Suspect]
     Indication: MITRAL VALVE REPLACEMENT
     Dosage: 2000000 U, ONCE, PUMP PRIME
     Route: 042
     Dates: start: 20030122
  6. HEPARIN [Concomitant]
     Dosage: 10000 U, UNK
     Dates: start: 20030122

REACTIONS (10)
  - ANXIETY [None]
  - UNEVALUABLE EVENT [None]
  - DEPRESSION [None]
  - ANHEDONIA [None]
  - RENAL FAILURE [None]
  - CEREBROVASCULAR ACCIDENT [None]
  - INJURY [None]
  - ADVERSE EVENT [None]
  - FEAR [None]
  - PAIN [None]
